FAERS Safety Report 14558378 (Version 2)
Quarter: 2018Q2

REPORT INFORMATION
  Report Type: Report from Study
  Country: FR (occurrence: FR)
  Receive Date: 20180221
  Receipt Date: 20180423
  Transmission Date: 20180711
  Serious: Yes (Hospitalization)
  Sender: FDA-Public Use
  Company Number: PHHO2018FR002390

PATIENT
  Age: 36 Year
  Sex: Male
  Weight: 62 kg

DRUGS (15)
  1. CYTARABINE. [Suspect]
     Active Substance: CYTARABINE
     Indication: ACUTE LYMPHOCYTIC LEUKAEMIA
     Dosage: 40 MG
     Route: 065
     Dates: start: 20180105, end: 20180105
  2. ONDANSETRON [Concomitant]
     Active Substance: ONDANSETRON
     Indication: NAUSEA
     Dosage: 8 MG
     Route: 042
     Dates: start: 20180205
  3. DEXAMETHASONE. [Suspect]
     Active Substance: DEXAMETHASONE
     Indication: ACUTE LYMPHOCYTIC LEUKAEMIA
     Dosage: 40 MG
     Route: 048
     Dates: start: 20180105, end: 20180127
  4. AMN107 [Suspect]
     Active Substance: NILOTINIB
     Dosage: 800 MG
     Route: 048
     Dates: start: 20180209
  5. NEXTRIL [Concomitant]
     Indication: ULCER
     Dosage: UNK
     Route: 048
     Dates: start: 20171031
  6. FUNGIZONE [Concomitant]
     Active Substance: AMPHOTERICIN B
     Indication: INFECTION PROPHYLAXIS
     Dosage: 2 CAO
     Route: 048
  7. VITAMIN K [Concomitant]
     Active Substance: PHYTONADIONE
     Indication: HYPOKALAEMIA
     Dosage: 10 MG
     Route: 042
     Dates: start: 20180205
  8. PLITICAN [Concomitant]
     Active Substance: ALIZAPRIDE HYDROCHLORIDE
     Indication: NAUSEA
     Dosage: 50 MG
     Route: 042
     Dates: start: 20180204
  9. AMN107 [Suspect]
     Active Substance: NILOTINIB
     Indication: ACUTE LYMPHOCYTIC LEUKAEMIA
     Dosage: 800 MG
     Route: 048
     Dates: start: 20171217, end: 20180205
  10. METHYLPREDNISOLONE ACETATE. [Suspect]
     Active Substance: METHYLPREDNISOLONE ACETATE
     Indication: ACUTE LYMPHOCYTIC LEUKAEMIA
     Dosage: 40 MG
     Route: 065
     Dates: start: 20180105, end: 20180105
  11. METHOTREXATE. [Suspect]
     Active Substance: METHOTREXATE
     Indication: ACUTE LYMPHOCYTIC LEUKAEMIA
     Dosage: 15 MG
     Route: 065
     Dates: start: 20180105, end: 20180105
  12. GENTAMICIN. [Concomitant]
     Active Substance: GENTAMICIN
     Indication: INFECTION PROPHYLAXIS
     Dosage: 2 G
     Route: 048
     Dates: start: 20180211
  13. VINDESINE [Suspect]
     Active Substance: VINDESINE
     Indication: ACUTE LYMPHOCYTIC LEUKAEMIA
     Dosage: 4 MG
     Route: 042
     Dates: start: 20180105, end: 20180126
  14. VINCRISTINE [Concomitant]
     Active Substance: VINCRISTINE
     Indication: ACUTE LYMPHOCYTIC LEUKAEMIA
     Dosage: UNK
     Route: 065
     Dates: start: 20171110
  15. VALACICLOVIR [Concomitant]
     Active Substance: VALACYCLOVIR HYDROCHLORIDE
     Indication: ANTIVIRAL PROPHYLAXIS
     Dosage: 1 G
     Route: 048
     Dates: start: 20171031

REACTIONS (1)
  - Neuropathy peripheral [Recovered/Resolved]

NARRATIVE: CASE EVENT DATE: 20180129
